FAERS Safety Report 6070412-1 (Version None)
Quarter: 2009Q1

REPORT INFORMATION
  Report Type: 
  Country: None (occurrence: None)
  Receive Date: 20090209
  Receipt Date: 20090129
  Transmission Date: 20090719
  Serious: Yes (Other)
  Sender: FDA-Public Use
  Company Number: PHHY2009GB03520

PATIENT
  Sex: Female

DRUGS (3)
  1. CLOZARIL [Suspect]
     Indication: SCHIZOPHRENIA
     Dosage: UNK
     Dates: start: 20050727
  2. LAMOTRIGINE [Suspect]
  3. AMISULPRIDE [Suspect]

REACTIONS (2)
  - BLOOD PROLACTIN INCREASED [None]
  - WHITE BLOOD CELL COUNT DECREASED [None]
